FAERS Safety Report 9984679 (Version 1)
Quarter: 2014Q1

REPORT INFORMATION
  Report Type: Report from Study
  Country: US (occurrence: US)
  Receive Date: 20140304
  Receipt Date: 20140304
  Transmission Date: 20141002
  Serious: No
  Sender: FDA-Public Use
  Company Number: US-ABBVIE-13P-163-1075053-00

PATIENT
  Age: 51 Year
  Sex: Female

DRUGS (4)
  1. HUMIRA [Suspect]
     Indication: CROHN^S DISEASE
     Dosage: LOADING DOSE
     Dates: start: 20130321, end: 20130321
  2. HUMIRA [Suspect]
     Dosage: LOADING DOSE
     Dates: start: 20130404
  3. RISPERDAL [Concomitant]
     Indication: HALLUCINATION, AUDITORY
  4. BUPROPION [Concomitant]
     Indication: DEPRESSION

REACTIONS (1)
  - Dyspnoea [Recovered/Resolved]
